FAERS Safety Report 11275752 (Version 1)
Quarter: 2015Q3

REPORT INFORMATION
  Report Type: Spontaneous
  Country: US (occurrence: US)
  Receive Date: 20150716
  Receipt Date: 20150716
  Transmission Date: 20151125
  Serious: Yes (Other)
  Sender: FDA-Public Use
  Company Number: US-TEVA-575922USA

PATIENT
  Sex: Female

DRUGS (5)
  1. VICODIN [Concomitant]
     Active Substance: ACETAMINOPHEN\HYDROCODONE BITARTRATE
     Dosage: 5 MILLIGRAM DAILY;
     Route: 048
  2. METOPROLOL [Suspect]
     Active Substance: METOPROLOL
     Indication: BLOOD PRESSURE MEASUREMENT
     Dosage: 50 MILLIGRAM DAILY;
     Route: 048
  3. XANAX [Suspect]
     Active Substance: ALPRAZOLAM
     Indication: VESTIBULAR DISORDER
     Dosage: 3 MILLIGRAM DAILY;
  4. LOSARTAN. [Suspect]
     Active Substance: LOSARTAN
     Indication: BLOOD PRESSURE MEASUREMENT
     Dosage: 25 MILLIGRAM DAILY;
     Route: 048
  5. HYDROCODONE [Suspect]
     Active Substance: HYDROCODONE
     Indication: PAIN
     Dosage: 10/325MG

REACTIONS (14)
  - Multiple sclerosis relapse [Unknown]
  - Dysgraphia [Unknown]
  - Blood pressure increased [Unknown]
  - Dysphagia [Unknown]
  - Dysarthria [Unknown]
  - Coordination abnormal [Unknown]
  - Generalised tonic-clonic seizure [Unknown]
  - Cerebrovascular accident [Unknown]
  - Gait disturbance [Unknown]
  - Anxiety [Unknown]
  - Renal disorder [Unknown]
  - Visual impairment [Unknown]
  - Dizziness [Unknown]
  - Vomiting projectile [Unknown]
